FAERS Safety Report 4902301-7 (Version None)
Quarter: 2006Q1

REPORT INFORMATION
  Report Type: 
  Country: None (occurrence: None)
  Receive Date: 20060202
  Receipt Date: 20060202
  Transmission Date: 20060701
  Serious: Yes (Hospitalization, Other)
  Sender: FDA-Public Use
  Company Number: None

PATIENT
  Sex: Male
  Weight: 73.6 kg

DRUGS (9)
  1. CARBOPLATIN [Suspect]
     Indication: SMALL CELL LUNG CANCER STAGE UNSPECIFIED
     Dosage: 1422 MG
     Dates: start: 20050711, end: 20050824
  2. CARBOPLATIN [Suspect]
     Indication: SMALL CELL LUNG CANCER STAGE UNSPECIFIED
     Dosage: 1422 MG
     Dates: start: 20050824
  3. CISPLATIN [Suspect]
     Dosage: 240 MG
     Dates: start: 20050527, end: 20050624
  4. ETOPOSIDE [Suspect]
     Dosage: 1800 MG
     Dates: start: 20050711, end: 20050824
  5. IRINOTECAN HCL [Suspect]
     Dosage: 520 MG
     Dates: start: 20050527, end: 20050624
  6. CYPROHEPTADINE HCL [Concomitant]
  7. ASPIRIN [Concomitant]
  8. FLUOXETINE HCL [Concomitant]
  9. METFORMIN [Concomitant]

REACTIONS (4)
  - ASTHENIA [None]
  - FALL [None]
  - FATIGUE [None]
  - HYDROCEPHALUS [None]
